FAERS Safety Report 7711042-2 (Version None)
Quarter: 2011Q3

REPORT INFORMATION
  Report Type: 
  Country: None (occurrence: None)
  Receive Date: 20110825
  Receipt Date: 20110819
  Transmission Date: 20111222
  Serious: Yes (Other)
  Sender: FDA-Public Use
  Company Number: SK-AMGEN-SVKSP2011042659

PATIENT
  Age: 61 Year
  Sex: Female

DRUGS (4)
  1. ETANERCEPT [Suspect]
     Indication: RHEUMATOID ARTHRITIS
     Dosage: UNK
     Dates: start: 20040723, end: 20110101
  2. METHOTREXATE [Concomitant]
     Dosage: 10 MG, WEEKLY
  3. MEDROL [Concomitant]
     Dosage: 4 MG, UNK
  4. SULFASALAZINE [Concomitant]
     Dosage: UNK

REACTIONS (2)
  - ARTHRITIS BACTERIAL [None]
  - RHEUMATOID ARTHRITIS [None]
